FAERS Safety Report 12921357 (Version 2)
Quarter: 2017Q1

REPORT INFORMATION
  Report Type: Report from Study
  Country: TW (occurrence: TW)
  Receive Date: 20161108
  Receipt Date: 20170306
  Transmission Date: 20170428
  Serious: Yes (Hospitalization)
  Sender: FDA-Public Use
  Company Number: TW-JNJFOC-20161023764

PATIENT
  Age: 62 Year
  Sex: Male
  Weight: 100 kg

DRUGS (10)
  1. OXACILLIN [Concomitant]
     Active Substance: OXACILLIN SODIUM
     Indication: CELLULITIS
     Route: 040
     Dates: start: 20161022
  2. CELEBREX [Concomitant]
     Active Substance: CELECOXIB
     Indication: PAIN MANAGEMENT
     Route: 048
     Dates: start: 20161024
  3. ACETAMINOPHEN. [Concomitant]
     Active Substance: ACETAMINOPHEN
     Indication: ANTIPYRESIS
     Dosage: AS NECESSARY
     Route: 048
     Dates: start: 20161022
  4. STELARA [Suspect]
     Active Substance: USTEKINUMAB
     Indication: PSORIASIS
     Route: 058
     Dates: start: 20131225, end: 20160729
  5. COLCHICINE. [Concomitant]
     Active Substance: COLCHICINE
     Indication: GOUT
     Route: 048
     Dates: start: 20161024
  6. ACETAMINOPHEN. [Concomitant]
     Active Substance: ACETAMINOPHEN
     Indication: ANALGESIC THERAPY
     Dosage: AS NECESSARY
     Route: 048
     Dates: start: 20161022
  7. CLINDAMYCIN. [Concomitant]
     Active Substance: CLINDAMYCIN
     Indication: CELLULITIS
     Dosage: DOSING STRENGTH: 300MG
     Route: 040
     Dates: start: 20161024
  8. NEOTIGASON [Concomitant]
     Active Substance: ACITRETIN
     Indication: PSORIASIS
     Dosage: DOSING STRENGTH: 10MG??EVERY MORNING
     Route: 048
     Dates: start: 20161022
  9. METHOTREXATE. [Concomitant]
     Active Substance: METHOTREXATE
     Indication: PSORIASIS
     Dosage: DOSING STRENGTH: 2.5MG
     Route: 048
     Dates: start: 20161022
  10. FURIDE [Concomitant]
     Indication: DIURETIC THERAPY
     Route: 048
     Dates: start: 20161022

REACTIONS (1)
  - Cellulitis [Recovered/Resolved]

NARRATIVE: CASE EVENT DATE: 20161018
